FAERS Safety Report 9324683 (Version 1)
Quarter: 2013Q2

REPORT INFORMATION
  Report Type: Spontaneous
  Country: US (occurrence: US)
  Receive Date: 20130603
  Receipt Date: 20130603
  Transmission Date: 20140414
  Serious: Yes (Other)
  Sender: FDA-Public Use
  Company Number: US-TEVA-409370USA

PATIENT
  Sex: Male
  Weight: 64.92 kg

DRUGS (8)
  1. TREANDA [Suspect]
     Indication: NON-HODGKIN^S LYMPHOMA
     Dates: start: 2010, end: 2011
  2. WARFARIN [Concomitant]
     Indication: ATRIAL FIBRILLATION
     Dosage: 2 MILLIGRAM DAILY;
     Route: 048
  3. WARFARIN [Concomitant]
     Dosage: 2.5 MILLIGRAM DAILY;
     Route: 048
  4. FLOMAX [Concomitant]
     Indication: BENIGN PROSTATIC HYPERPLASIA
     Dosage: .4 MILLIGRAM DAILY;
     Route: 048
  5. METOPROLOL [Concomitant]
     Dosage: 50 MILLIGRAM DAILY;
     Route: 048
  6. FINASTERIDE [Concomitant]
     Indication: BENIGN PROSTATIC HYPERPLASIA
     Route: 048
  7. DIGOXIN [Concomitant]
     Indication: HEART RATE
     Dosage: 125 MICROGRAM DAILY;
     Route: 048
  8. HCTZ [Concomitant]
     Route: 048

REACTIONS (2)
  - Blood count abnormal [Unknown]
  - Pain [Unknown]
